FAERS Safety Report 6373905-2 (Version None)
Quarter: 2009Q3

REPORT INFORMATION
  Report Type: 
  Country: None (occurrence: None)
  Receive Date: 20090924
  Receipt Date: 20090518
  Transmission Date: 20100115
  Serious: No
  Sender: FDA-Public Use
  Company Number: US-ASTRAZENECA-2009UW12608

PATIENT
  Age: 51 Year
  Sex: Female
  Weight: 72.6 kg

DRUGS (5)
  1. SEROQUEL [Suspect]
     Indication: INSOMNIA
     Route: 048
     Dates: start: 20060301
  2. PREGABALIN [Suspect]
     Indication: INSOMNIA
     Route: 048
     Dates: start: 20080301
  3. XYREM [Suspect]
     Indication: INSOMNIA
     Route: 048
     Dates: start: 20090319, end: 20090320
  4. XYREM [Suspect]
     Dosage: TITRATE TO 4.5 GM TWICE
     Route: 048
     Dates: start: 20090101
  5. DULOXETINE HYDROCHLORIDE [Concomitant]

REACTIONS (5)
  - CRYING [None]
  - DEPRESSION [None]
  - DIZZINESS [None]
  - FATIGUE [None]
  - FEELING ABNORMAL [None]
